FAERS Safety Report 25424529 (Version 1)
Quarter: 2025Q2

REPORT INFORMATION
  Report Type: Spontaneous
  Country: US (occurrence: US)
  Receive Date: 20250611
  Receipt Date: 20250611
  Transmission Date: 20250717
  Serious: No
  Sender: GLENMARK
  Company Number: US-GLENMARK PHARMACEUTICALS-2024GMK091807

PATIENT

DRUGS (2)
  1. TACROLIMUS [Suspect]
     Active Substance: TACROLIMUS
     Indication: Rosacea
     Route: 061
     Dates: start: 2023
  2. TACROLIMUS [Suspect]
     Active Substance: TACROLIMUS
     Route: 061

REACTIONS (4)
  - Product use issue [Unknown]
  - Product use in unapproved indication [Unknown]
  - Environmental exposure [Unknown]
  - Product container issue [Unknown]

NARRATIVE: CASE EVENT DATE: 20230101
